FAERS Safety Report 17203662 (Version 1)
Quarter: 2019Q4

REPORT INFORMATION
  Report Type: Spontaneous
  Country: NO (occurrence: NO)
  Receive Date: 20191226
  Receipt Date: 20191226
  Transmission Date: 20200122
  Serious: Yes (Other)
  Sender: FDA-Public Use
  Company Number: NO-JNJFOC-20191233007

PATIENT

DRUGS (1)
  1. STELARA [Suspect]
     Active Substance: USTEKINUMAB
     Indication: CROHN^S DISEASE
     Route: 042

REACTIONS (6)
  - Hypersensitivity [Unknown]
  - Pyrexia [Unknown]
  - Pericardial effusion [Unknown]
  - Myalgia [Unknown]
  - Back pain [Unknown]
  - Resuscitation [Unknown]
